FAERS Safety Report 6993442-1 (Version None)
Quarter: 2010Q3

REPORT INFORMATION
  Report Type: 
  Country: None (occurrence: None)
  Receive Date: 20100917
  Receipt Date: 20100526
  Transmission Date: 20110219
  Serious: No
  Sender: FDA-Public Use
  Company Number: US-ASTRAZENECA-2010SE24362

PATIENT
  Age: 23 Year
  Sex: Male
  Weight: 74.8 kg

DRUGS (3)
  1. SEROQUEL XR [Suspect]
     Indication: BIPOLAR DISORDER
     Route: 048
     Dates: start: 20100501, end: 20100512
  2. KLONOPIN [Concomitant]
     Indication: BIPOLAR DISORDER
     Route: 048
     Dates: start: 20100501
  3. CELEXA [Concomitant]
     Indication: BIPOLAR DISORDER
     Route: 048
     Dates: start: 20100501

REACTIONS (3)
  - AGGRESSION [None]
  - HYPERSOMNIA [None]
  - NAUSEA [None]
